FAERS Safety Report 6689393-2 (Version None)
Quarter: 2010Q2

REPORT INFORMATION
  Report Type: 
  Country: None (occurrence: None)
  Receive Date: 20100419
  Receipt Date: 20100419
  Transmission Date: 20101027
  Serious: Yes (Life-Threatening, Hospitalization)
  Sender: FDA-Public Use
  Company Number: None

PATIENT
  Age: 32 Year
  Sex: Female
  Weight: 52.1637 kg

DRUGS (1)
  1. BACTRIM [Suspect]
     Indication: INFECTION
     Dosage: 2X DAILY
     Dates: start: 20040417, end: 20040501

REACTIONS (13)
  - ABASIA [None]
  - APHASIA [None]
  - CARDIAC DISORDER [None]
  - DEFORMITY [None]
  - DEPRESSION [None]
  - EAR DISORDER [None]
  - EYE DISORDER [None]
  - FATIGUE [None]
  - HEADACHE [None]
  - NO THERAPEUTIC RESPONSE [None]
  - SPEECH DISORDER [None]
  - STEVENS-JOHNSON SYNDROME [None]
  - THROAT TIGHTNESS [None]
